FAERS Safety Report 4478515-X (Version None)
Quarter: 2004Q4

REPORT INFORMATION
  Report Type: 
  Country: None (occurrence: None)
  Receive Date: 20041018
  Receipt Date: 20041018
  Transmission Date: 20050328
  Serious: Yes (Other)
  Sender: FDA-Public Use
  Company Number: None

PATIENT
  Age: 65 Year
  Sex: Female
  Weight: 77.1115 kg

DRUGS (2)
  1. LISINOPRIL [Suspect]
     Indication: HYPERTENSION
     Dosage: 5 MG DLY PO
     Route: 048
     Dates: start: 20040914, end: 20040928
  2. LEVOTHYROXINE SODIUM [Suspect]
     Indication: HYPOTHYROIDISM
     Dosage: 112 MCG DLY PO
     Route: 048
     Dates: start: 20040914, end: 20040928

REACTIONS (6)
  - COMA [None]
  - CONFUSIONAL STATE [None]
  - DIZZINESS [None]
  - HEADACHE [None]
  - NAUSEA [None]
  - STARING [None]
